FAERS Safety Report 10994538 (Version 2)
Quarter: 2015Q3

REPORT INFORMATION
  Report Type: Report from Study
  Country: AU (occurrence: AU)
  Receive Date: 20150407
  Receipt Date: 20150728
  Transmission Date: 20151125
  Serious: Yes (Hospitalization, Other)
  Sender: FDA-Public Use
  Company Number: AU-ABBVIE-15P-008-1371693-00

PATIENT
  Age: 68 Year
  Sex: Male

DRUGS (1)
  1. LUCRIN DEPOT [Suspect]
     Active Substance: LEUPROLIDE ACETATE
     Indication: PRODUCT USED FOR UNKNOWN INDICATION
     Route: 050
     Dates: start: 20140315

REACTIONS (5)
  - Infection [Unknown]
  - Lethargy [Unknown]
  - Depressed mood [Unknown]
  - Metastases to bone [Unknown]
  - Viral infection [Unknown]

NARRATIVE: CASE EVENT DATE: 201501
